FAERS Safety Report 18529736 (Version 14)
Quarter: 2021Q2

REPORT INFORMATION
  Report Type: Report from Study
  Country: FI (occurrence: FI)
  Receive Date: 20201120
  Receipt Date: 20210629
  Transmission Date: 20210717
  Serious: Yes (Hospitalization, Other)
  Sender: FDA-Public Use
  Company Number: FI-VERTEX PHARMACEUTICALS-2020-022574

PATIENT
  Age: 21 Year
  Sex: Female
  Weight: 52 kg

DRUGS (19)
  1. SERTRALINE [Concomitant]
     Active Substance: SERTRALINE HYDROCHLORIDE
     Dosage: 150 MG, QD
     Dates: start: 201812, end: 20201115
  2. PULMOZYME [Concomitant]
     Active Substance: DORNASE ALFA
  3. VITAMIN K [Concomitant]
     Active Substance: PHYTONADIONE
  4. KALYDECO [Suspect]
     Active Substance: IVACAFTOR
     Dosage: REDUCED DOSE (FIRST TWO DAYS A WEEK ON WEDNESDAY?SUNDAY)
     Route: 048
     Dates: start: 20210408, end: 20210429
  5. NACL [Concomitant]
     Active Substance: SODIUM CHLORIDE
  6. CREON [Concomitant]
     Active Substance: PANCRELIPASE AMYLASE\PANCRELIPASE LIPASE\PANCRELIPASE PROTEASE
  7. KAFTRIO [Suspect]
     Active Substance: ELEXACAFTOR\IVACAFTOR\TEZACAFTOR
     Indication: CYSTIC FIBROSIS
     Dosage: 75MG IVACAFTOR/50MG TEZACAFTOR/100MG ELEXACAFTOR;IN AM
     Route: 048
     Dates: start: 20200624, end: 202011
  8. KALYDECO [Suspect]
     Active Substance: IVACAFTOR
     Indication: CYSTIC FIBROSIS
     Dosage: 150MG IVACAFTOR;IN PM
     Route: 048
     Dates: start: 20200624, end: 202011
  9. MIRTAZAPINE. [Concomitant]
     Active Substance: MIRTAZAPINE
     Dosage: 15 UNK, QD
     Dates: start: 201902, end: 20201115
  10. VITAMIN E [Concomitant]
     Active Substance: .ALPHA.-TOCOPHEROL
  11. INSULIN [Concomitant]
     Active Substance: INSULIN NOS
  12. KAFTRIO [Suspect]
     Active Substance: ELEXACAFTOR\IVACAFTOR\TEZACAFTOR
     Dosage: EVERY OTHER DAY
     Route: 048
     Dates: start: 20210429, end: 2021
  13. KALYDECO [Suspect]
     Active Substance: IVACAFTOR
     Dosage: EVERY OTHER DAY
     Route: 048
     Dates: start: 20210429, end: 2021
  14. VITAMIN A [RETINOL] [Concomitant]
     Active Substance: RETINOL
  15. KAFTRIO [Suspect]
     Active Substance: ELEXACAFTOR\IVACAFTOR\TEZACAFTOR
     Dosage: NORMAL DOSAGE
     Route: 048
     Dates: start: 20210507
  16. KAFTRIO [Suspect]
     Active Substance: ELEXACAFTOR\IVACAFTOR\TEZACAFTOR
     Dosage: REDUCED DOSE (FIRST TWO DAYS A WEEK ON WEDNESDAY?SUNDAY)
     Route: 048
     Dates: start: 20210408, end: 20210428
  17. KALYDECO [Suspect]
     Active Substance: IVACAFTOR
     Dosage: NORMAL DOSAGE
     Route: 048
     Dates: start: 20210507
  18. SERTRALINE [Concomitant]
     Active Substance: SERTRALINE HYDROCHLORIDE
     Dosage: 100 MG, QD
     Dates: start: 202011
  19. MELATONIN [Concomitant]
     Active Substance: MELATONIN
     Dosage: UNK UNK, QD

REACTIONS (4)
  - Vomiting [Unknown]
  - Nausea [Unknown]
  - Pneumonia [Unknown]
  - Drug-induced liver injury [Recovered/Resolved]

NARRATIVE: CASE EVENT DATE: 202010
